FAERS Safety Report 6699905-0 (Version None)
Quarter: 2010Q2

REPORT INFORMATION
  Report Type: 
  Country: None (occurrence: None)
  Receive Date: 20100428
  Receipt Date: 20100420
  Transmission Date: 20101027
  Serious: Yes (Hospitalization, Other)
  Sender: FDA-Public Use
  Company Number: US-PERRIGO-10US008962

PATIENT
  Sex: Male
  Weight: 90.703 kg

DRUGS (3)
  1. TUSSIN DM LIQ 359 [Suspect]
     Indication: DEPENDENCE
     Dosage: 4-28 OZ, DAILY
     Route: 048
     Dates: start: 20050101
  2. TUSSIN DM LIQ 359 [Suspect]
     Indication: PAIN
  3. AMLODIPINE [Concomitant]
     Indication: HYPERTENSION
     Dosage: UNKNOWN
     Route: 048

REACTIONS (5)
  - DELUSION [None]
  - DRUG DEPENDENCE [None]
  - HYPERTENSIVE CRISIS [None]
  - OVERDOSE [None]
  - PARANOIA [None]
